FAERS Safety Report 12357813 (Version 2)
Quarter: 2016Q2

REPORT INFORMATION
  Report Type: Spontaneous
  Country: US (occurrence: US)
  Receive Date: 20160512
  Receipt Date: 20160517
  Transmission Date: 20160815
  Serious: Yes (Hospitalization, Other)
  Sender: FDA-Public Use
  Company Number: US-ROCHE-1754164

PATIENT
  Age: 55 Year
  Sex: Female
  Weight: 75 kg

DRUGS (12)
  1. TAMOXIFEN [Concomitant]
     Active Substance: TAMOXIFEN
     Indication: METASTASES TO CENTRAL NERVOUS SYSTEM
  2. TAXOTERE [Concomitant]
     Active Substance: DOCETAXEL
     Indication: METASTASES TO CENTRAL NERVOUS SYSTEM
  3. ZOMETA [Concomitant]
     Active Substance: ZOLEDRONIC ACID
  4. HERCEPTIN [Suspect]
     Active Substance: TRASTUZUMAB
     Route: 037
     Dates: start: 201509
  5. ARIMIDEX [Concomitant]
     Active Substance: ANASTROZOLE
  6. TAXOL [Concomitant]
     Active Substance: PACLITAXEL
     Dosage: INDICATION: CNS PROGRESSION
     Route: 065
  7. TYKERB [Concomitant]
     Active Substance: LAPATINIB DITOSYLATE
     Indication: METASTASES TO CENTRAL NERVOUS SYSTEM
  8. XELODA [Suspect]
     Active Substance: CAPECITABINE
     Indication: METASTASES TO CENTRAL NERVOUS SYSTEM
     Route: 065
  9. AROMASIN [Concomitant]
     Active Substance: EXEMESTANE
  10. HERCEPTIN [Suspect]
     Active Substance: TRASTUZUMAB
     Indication: METASTASES TO CENTRAL NERVOUS SYSTEM
     Route: 037
     Dates: start: 2002
  11. ZOLADEX [Concomitant]
     Active Substance: GOSERELIN ACETATE
  12. METHOTREXATE [Concomitant]
     Active Substance: METHOTREXATE
     Route: 037
     Dates: start: 20160509

REACTIONS (8)
  - Muscular weakness [Unknown]
  - Spinal cord disorder [Unknown]
  - Metastases to central nervous system [Unknown]
  - Gastrooesophageal reflux disease [Unknown]
  - Anal incontinence [Unknown]
  - Hypoaesthesia [Unknown]
  - Urinary incontinence [Unknown]
  - Off label use [Unknown]

NARRATIVE: CASE EVENT DATE: 2006
